FAERS Safety Report 13205143 (Version 2)
Quarter: 2017Q1

REPORT INFORMATION
  Report Type: Report from Study
  Country: JP (occurrence: JP)
  Receive Date: 20170209
  Receipt Date: 20170315
  Transmission Date: 20170428
  Serious: Yes (Death)
  Sender: FDA-Public Use
  Company Number: JP-ACTELION-A-CH2016-146213

PATIENT
  Age: 58 Year
  Sex: Male

DRUGS (15)
  1. OPSUMIT [Suspect]
     Active Substance: MACITENTAN
     Indication: PULMONARY ARTERIAL HYPERTENSION
     Dosage: 2.5 MG, OD
     Route: 048
     Dates: start: 20160712, end: 20160719
  2. OPSUMIT [Suspect]
     Active Substance: MACITENTAN
     Dosage: 10 MG, OD
     Route: 048
     Dates: start: 20160725, end: 20160730
  3. BELSOMRA [Concomitant]
     Active Substance: SUVOREXANT
  4. MAGNESIUM OXIDE. [Concomitant]
     Active Substance: MAGNESIUM OXIDE
  5. SPIRONOLACTONE. [Concomitant]
     Active Substance: SPIRONOLACTONE
  6. CARELOAD [Concomitant]
     Active Substance: BERAPROST SODIUM
  7. OPSUMIT [Suspect]
     Active Substance: MACITENTAN
     Dosage: 5 MG, OD
     Route: 048
     Dates: start: 20160720, end: 20160724
  8. SELARA [Concomitant]
     Active Substance: EPLERENONE
  9. RESTAMIN [Concomitant]
     Active Substance: DIPHENHYDRAMINE
  10. ALLOPURINOL. [Concomitant]
     Active Substance: ALLOPURINOL
  11. LIVALO [Concomitant]
     Active Substance: PITAVASTATIN CALCIUM
  12. FUROSEMIDE. [Concomitant]
     Active Substance: FUROSEMIDE
  13. ADCIRCA [Concomitant]
     Active Substance: TADALAFIL
  14. BAYASPIRIN [Concomitant]
     Active Substance: ASPIRIN
  15. OXYGEN. [Concomitant]
     Active Substance: OXYGEN

REACTIONS (4)
  - Dyspnoea [Fatal]
  - Cardio-respiratory arrest [Fatal]
  - Pulmonary hypertension [Fatal]
  - Eosinophilic pneumonia chronic [Fatal]

NARRATIVE: CASE EVENT DATE: 20161107
